FAERS Safety Report 9661949 (Version 2)
Quarter: 2013Q4

REPORT INFORMATION
  Report Type: Spontaneous
  Country: US (occurrence: US)
  Receive Date: 20131031
  Receipt Date: 20131031
  Transmission Date: 20140711
  Serious: No
  Sender: FDA-Public Use
  Company Number: US-PURDUE-USA-2010-0063370

PATIENT
  Age: 45 Year
  Sex: Male
  Weight: 86.17 kg

DRUGS (1)
  1. OXYCONTIN (NDA 22-272) [Suspect]
     Indication: PAIN
     Dosage: 80 MG, UNK
     Dates: end: 201010

REACTIONS (5)
  - Change of bowel habit [Recovered/Resolved]
  - Faeces discoloured [Recovered/Resolved]
  - Faeces hard [Recovered/Resolved]
  - Abdominal discomfort [Recovered/Resolved]
  - Abdominal pain [Recovered/Resolved]
